FAERS Safety Report 6052855-5 (Version None)
Quarter: 2009Q1

REPORT INFORMATION
  Report Type: 
  Country: None (occurrence: None)
  Receive Date: 20090127
  Receipt Date: 20090114
  Transmission Date: 20090719
  Serious: Yes (Other)
  Sender: FDA-Public Use
  Company Number: PHHY2009GB01731

PATIENT
  Age: 52 Year
  Sex: Female

DRUGS (1)
  1. DICLOFENAC [Suspect]

REACTIONS (7)
  - ABDOMINAL PAIN [None]
  - DUODENAL ULCER [None]
  - HAEMATEMESIS [None]
  - HAEMORRHAGE [None]
  - LAPAROTOMY [None]
  - NEPHRECTOMY [None]
  - TRANSFUSION [None]
